FAERS Safety Report 19993690 (Version 15)
Quarter: 2025Q2

REPORT INFORMATION
  Report Type: Spontaneous
  Country: AT (occurrence: AT)
  Receive Date: 20211025
  Receipt Date: 20250430
  Transmission Date: 20250717
  Serious: Yes (Other)
  Sender: NOVARTIS
  Company Number: AT-NOVARTISPH-NVSC2021AT209927

PATIENT
  Sex: Female

DRUGS (1)
  1. GILENYA [Suspect]
     Active Substance: FINGOLIMOD HYDROCHLORIDE
     Indication: Multiple sclerosis
     Route: 048
     Dates: start: 20210909

REACTIONS (7)
  - Gastrointestinal disorder [Not Recovered/Not Resolved]
  - Leukopenia [Not Recovered/Not Resolved]
  - Aspartate aminotransferase abnormal [Not Recovered/Not Resolved]
  - Blood bilirubin abnormal [Not Recovered/Not Resolved]
  - Lymphopenia [Not Recovered/Not Resolved]
  - Gamma-glutamyltransferase [Not Recovered/Not Resolved]
  - Lymphatic disorder [Not Recovered/Not Resolved]

NARRATIVE: CASE EVENT DATE: 20210909
